FAERS Safety Report 4466790-7 (Version None)
Quarter: 2004Q3

REPORT INFORMATION
  Report Type: 
  Country: None (occurrence: None)
  Receive Date: 20040930
  Receipt Date: 20040923
  Transmission Date: 20050211
  Serious: Yes (Hospitalization)
  Sender: FDA-Public Use
  Company Number: TPA2004A01146

PATIENT
  Age: 73 Year
  Sex: Female
  Weight: 67.1324 kg

DRUGS (2)
  1. ACTOS [Suspect]
     Indication: DIABETES MELLITUS
     Dosage: PER ORAL
     Route: 048
     Dates: end: 20040629
  2. PREDNISONE [Suspect]
     Indication: CEREBROVASCULAR ACCIDENT

REACTIONS (2)
  - BLOOD GLUCOSE INCREASED [None]
  - CEREBROVASCULAR ACCIDENT [None]
